FAERS Safety Report 15586690 (Version 1)
Quarter: 2018Q4

REPORT INFORMATION
  Report Type: Spontaneous
  Country: US (occurrence: US)
  Receive Date: 20181101
  Receipt Date: 20181101
  Transmission Date: 20190205
  Serious: No
  Sender: FDA-Public Use
  Company Number: None

PATIENT
  Age: 68 Year
  Sex: Female

DRUGS (1)
  1. CARBOPLATIN INJ 50MG/5ML [Suspect]
     Active Substance: CARBOPLATIN
     Dates: start: 201808

REACTIONS (1)
  - Disease progression [None]

NARRATIVE: CASE EVENT DATE: 20181030
